FAERS Safety Report 5783091-5 (Version None)
Quarter: 2008Q2

REPORT INFORMATION
  Report Type: 
  Country: None (occurrence: None)
  Receive Date: 20080619
  Receipt Date: 20080619
  Transmission Date: 20081010
  Serious: Yes (Life-Threatening)
  Sender: FDA-Public Use
  Company Number: None

PATIENT
  Age: 45 Year
  Sex: Male
  Weight: 122.4712 kg

DRUGS (1)
  1. DIGITEK 250 MCG TABLET BERTEK [Suspect]
     Indication: ATRIAL FIBRILLATION
     Dosage: .25 MG 1XDAY PO MANY YEARS IM NOT SURE
     Route: 048
     Dates: start: 20060101, end: 20080618

REACTIONS (20)
  - ABDOMINAL PAIN [None]
  - ASTHENIA [None]
  - CHOKING [None]
  - DEPRESSION [None]
  - DIARRHOEA [None]
  - DYSPNOEA [None]
  - FATIGUE [None]
  - HAEMOPTYSIS [None]
  - HEADACHE [None]
  - HEART RATE DECREASED [None]
  - HEART RATE INCREASED [None]
  - HYPOAESTHESIA [None]
  - MALAISE [None]
  - NO THERAPEUTIC RESPONSE [None]
  - PARAESTHESIA [None]
  - POOR PERIPHERAL CIRCULATION [None]
  - RASH [None]
  - SKIN DISCOLOURATION [None]
  - SYNCOPE [None]
  - TRANSIENT ISCHAEMIC ATTACK [None]
